FAERS Safety Report 18512035 (Version 1)
Quarter: 2020Q4

REPORT INFORMATION
  Report Type: Spontaneous
  Country: US (occurrence: US)
  Receive Date: 20201117
  Receipt Date: 20201117
  Transmission Date: 20210114
  Serious: Yes (Life-Threatening, Hospitalization)
  Sender: FDA-Public Use
  Company Number: None

PATIENT
  Age: 40 Year
  Sex: Female
  Weight: 91.8 kg

DRUGS (1)
  1. PAROEX CHLORHEXIDINE GLUCONATE [Suspect]
     Active Substance: CHLORHEXIDINE GLUCONATE
     Indication: DENTAL CARE
     Dosage: ?          OTHER ROUTE:USED IN DENTAL PROCEDURE?
     Dates: start: 20200914, end: 20200916

REACTIONS (5)
  - Pain [None]
  - Gastrointestinal disorder [None]
  - Ovarian cyst [None]
  - Sepsis [None]
  - Heart rate increased [None]

NARRATIVE: CASE EVENT DATE: 20200917
